FAERS Safety Report 14245317 (Version 1)
Quarter: 2017Q4

REPORT INFORMATION
  Report Type: Spontaneous
  Country: US (occurrence: US)
  Receive Date: 20171202
  Receipt Date: 20171202
  Transmission Date: 20180321
  Serious: No
  Sender: FDA-Public Use
  Company Number: US-ENDO PHARMACEUTICALS INC-2017-003887

PATIENT
  Age: 51 Year
  Sex: Male
  Weight: 90.7 kg

DRUGS (6)
  1. XIAFLEX [Suspect]
     Active Substance: COLLAGENASE CLOSTRIDIUM HISTOLYTICUM
     Dosage: 0.9 MG, SECOND INJECTION, CYCLE ONE, SINGLE
     Route: 026
     Dates: start: 2017
  2. XIAFLEX [Suspect]
     Active Substance: COLLAGENASE CLOSTRIDIUM HISTOLYTICUM
     Dosage: 0.9 MG, FIRST INJECTION, CYCLE ONE, SINGLE
     Route: 026
     Dates: start: 2017
  3. VITAMIN E                          /00110501/ [Concomitant]
     Active Substance: TOCOPHEROL
     Indication: PEYRONIE^S DISEASE
  4. LIPITOR [Concomitant]
     Active Substance: ATORVASTATIN CALCIUM
     Indication: PRODUCT USED FOR UNKNOWN INDICATION
  5. XIAFLEX [Suspect]
     Active Substance: COLLAGENASE CLOSTRIDIUM HISTOLYTICUM
     Indication: PEYRONIE^S DISEASE
     Dosage: UNK MG, FIRST INJECTION, CYCLE TWO, SINGLE
     Route: 026
     Dates: start: 20170703
  6. ATORVASTATIN CALCIUM. [Concomitant]
     Active Substance: ATORVASTATIN CALCIUM
     Indication: PRODUCT USED FOR UNKNOWN INDICATION

REACTIONS (5)
  - Painful erection [Unknown]
  - Inappropriate schedule of drug administration [Recovered/Resolved]
  - Injection site swelling [Recovered/Resolved]
  - Penile contusion [Unknown]
  - Penile pain [Not Recovered/Not Resolved]

NARRATIVE: CASE EVENT DATE: 20170703
